FAERS Safety Report 4615676-3 (Version None)
Quarter: 2005Q1

REPORT INFORMATION
  Report Type: 
  Country: None (occurrence: None)
  Receive Date: 20050317
  Receipt Date: 20050303
  Transmission Date: 20050727
  Serious: Yes (Hospitalization, Other)
  Sender: FDA-Public Use
  Company Number: 2005-00778

PATIENT
  Age: 43 Year
  Sex: Female
  Weight: 149.7 kg

DRUGS (11)
  1. FERRLECIT [Suspect]
     Indication: HAEMOGLOBIN DECREASED
     Dosage: 125 MG, DAILY X4 DAYS, INTRAVENOUS
     Route: 042
     Dates: start: 20050222, end: 20050225
  2. FERRLECIT [Suspect]
     Indication: IRON DEFICIENCY
     Dosage: 125 MG, DAILY X4 DAYS, INTRAVENOUS
     Route: 042
     Dates: start: 20050222, end: 20050225
  3. FERRLECIT [Suspect]
     Indication: MENORRHAGIA
     Dosage: 125 MG, DAILY X4 DAYS, INTRAVENOUS
     Route: 042
     Dates: start: 20050222, end: 20050225
  4. TEQUIN [Suspect]
     Indication: COUGH
     Dates: start: 20050201
  5. LONITEN [Concomitant]
  6. BUMEX [Concomitant]
  7. ADALAT CC [Concomitant]
  8. INSULIN [Concomitant]
  9. COREG [Concomitant]
  10. HYDRALAZINE [Concomitant]
  11. FOLTX (PYRIDOXINE) [Concomitant]

REACTIONS (4)
  - DIALYSIS [None]
  - HAEMOLYTIC URAEMIC SYNDROME [None]
  - OFF LABEL USE [None]
  - URTICARIA [None]
